FAERS Safety Report 8858447 (Version 5)
Quarter: 2013Q1

REPORT INFORMATION
  Report Type: Spontaneous
  Country: IT (occurrence: IT)
  Receive Date: 20121024
  Receipt Date: 20130308
  Transmission Date: 20140127
  Serious: Yes (Hospitalization)
  Sender: FDA-Public Use
  Company Number: IT-AMGEN-ITASP2012067247

PATIENT
  Age: 70 Year
  Sex: Male

DRUGS (10)
  1. PROLIA [Suspect]
     Indication: OSTEOPOROSIS
     Dosage: 60 MG, Q6MO
     Route: 058
     Dates: start: 20111203, end: 20120617
  2. DEPAMAG [Concomitant]
     Dosage: 700 MG, QD
     Route: 048
  3. EUTIROX [Concomitant]
     Dosage: 750 MUG, UNK
     Route: 048
  4. RIVOTRIL [Concomitant]
     Dosage: 0.75 MG, UNK
     Route: 048
  5. ZYPREXA [Concomitant]
     Dosage: 1.25 MG, UNK
     Route: 048
  6. TAVOR /00273201/ [Concomitant]
     Dosage: 1 MG, UNK
     Route: 048
  7. MEDROL                             /00049601/ [Concomitant]
     Dosage: 8 MG, UNK
     Route: 048
  8. PANTORC [Concomitant]
     Dosage: 20 MG, UNK
     Route: 048
  9. NATECAL D3 [Concomitant]
     Dosage: 1 DF, UNK
     Route: 048
  10. KCL-RETARD [Concomitant]
     Dosage: 1 DF, UNK
     Route: 048

REACTIONS (4)
  - Pneumonitis [Unknown]
  - Asthenia [Recovered/Resolved]
  - Pyrexia [Recovered/Resolved]
  - Rash [Recovered/Resolved]
